FAERS Safety Report 7516393-2 (Version None)
Quarter: 2011Q2

REPORT INFORMATION
  Report Type: 
  Country: None (occurrence: None)
  Receive Date: 20110523
  Receipt Date: 20110511
  Transmission Date: 20111010
  Serious: Yes (Death)
  Sender: FDA-Public Use
  Company Number: JPI-P-014796

PATIENT
  Age: 57 Year
  Sex: Male

DRUGS (6)
  1. XYREM (500 MILLILIGRAM/MILLILITERS, SOLUTION) (SODIUM OXYBATE)500 MILL [Suspect]
     Indication: PRODUCT USED FOR UNKNOWN INDICATION
     Dosage: 4.5 GM (2.25 GM,2 IN 1 D), ORAL; 7.5 GM (3.75 GM,2 IN 1 D), ORAL; 9 GM (4.5 GM,2 IN 1 D), SEE IMAGE
     Route: 048
     Dates: start: 20040203
  2. XYREM (500 MILLILIGRAM/MILLILITERS, SOLUTION) (SODIUM OXYBATE)500 MILL [Suspect]
     Indication: PRODUCT USED FOR UNKNOWN INDICATION
     Dosage: 4.5 GM (2.25 GM,2 IN 1 D), ORAL; 7.5 GM (3.75 GM,2 IN 1 D), ORAL; 9 GM (4.5 GM,2 IN 1 D), SEE IMAGE
     Route: 048
     Dates: start: 20070511, end: 20070501
  3. XYREM (500 MILLILIGRAM/MILLILITERS, SOLUTION) (SODIUM OXYBATE)500 MILL [Suspect]
     Indication: PRODUCT USED FOR UNKNOWN INDICATION
     Dosage: 4.5 GM (2.25 GM,2 IN 1 D), ORAL; 7.5 GM (3.75 GM,2 IN 1 D), ORAL; 9 GM (4.5 GM,2 IN 1 D), SEE IMAGE
     Route: 048
     Dates: start: 20040312
  4. XYREM (500 MILLILIGRAM/MILLILITERS, SOLUTION) (SODIUM OXYBATE)500 MILL [Suspect]
     Indication: PRODUCT USED FOR UNKNOWN INDICATION
     Dosage: 4.5 GM (2.25 GM,2 IN 1 D), ORAL; 7.5 GM (3.75 GM,2 IN 1 D), ORAL; 9 GM (4.5 GM,2 IN 1 D), SEE IMAGE
     Route: 048
     Dates: start: 20040408
  5. XYREM (500 MILLILIGRAM/MILLILITERS, SOLUTION) (SODIUM OXYBATE)500 MILL [Suspect]
     Indication: PRODUCT USED FOR UNKNOWN INDICATION
     Dosage: 4.5 GM (2.25 GM,2 IN 1 D), ORAL; 7.5 GM (3.75 GM,2 IN 1 D), ORAL; 9 GM (4.5 GM,2 IN 1 D), SEE IMAGE
     Route: 048
     Dates: start: 20040219
  6. XYREM (500 MILLILIGRAM/MILLILITERS, SOLUTION) (SODIUM OXYBATE)500 MILL [Suspect]
     Indication: PRODUCT USED FOR UNKNOWN INDICATION
     Dosage: 4.5 GM (2.25 GM,2 IN 1 D), ORAL; 7.5 GM (3.75 GM,2 IN 1 D), ORAL; 9 GM (4.5 GM,2 IN 1 D), SEE IMAGE
     Route: 048
     Dates: start: 20040513

REACTIONS (1)
  - DEATH [None]
